FAERS Safety Report 15311032 (Version 1)
Quarter: 2018Q3

REPORT INFORMATION
  Report Type: Spontaneous
  Country: US (occurrence: US)
  Receive Date: 20180823
  Receipt Date: 20180823
  Transmission Date: 20181010
  Serious: Yes (Hospitalization, Disabling)
  Sender: FDA-Public Use
  Company Number: US-009507513-1808USA008472

PATIENT
  Age: 46 Year
  Sex: Female

DRUGS (5)
  1. PEMBROLIZUMAB. [Suspect]
     Active Substance: PEMBROLIZUMAB
     Dosage: DOSAGE FORM: UNSPECIFIED
     Route: 042
     Dates: start: 20170831, end: 20170916
  2. NIRAPARIB [Concomitant]
     Active Substance: NIRAPARIB
     Dosage: 200 MG, QD
     Route: 048
     Dates: start: 20170831, end: 20170904
  3. DILAUDID [Suspect]
     Active Substance: HYDROMORPHONE HYDROCHLORIDE
     Indication: PAIN
     Dosage: DOSAGE FORM: UNSPECIFIED
     Route: 065
     Dates: start: 20170822
  4. FENTANYL. [Suspect]
     Active Substance: FENTANYL
     Indication: PAIN
     Dosage: DOSAGE FORM: UNSPECIFIED
     Route: 062
     Dates: start: 20170822
  5. NIRAPARIB [Concomitant]
     Active Substance: NIRAPARIB
     Indication: OVARIAN CANCER
     Dosage: 200 MG, QD
     Route: 048
     Dates: start: 20170906

REACTIONS (7)
  - Tachycardia [Unknown]
  - Constipation [Recovered/Resolved]
  - Abdominal pain [Unknown]
  - Pneumonia [Unknown]
  - Seizure [Unknown]
  - Small intestinal obstruction [Unknown]
  - Failure to thrive [Unknown]

NARRATIVE: CASE EVENT DATE: 2017
